FAERS Safety Report 14624982 (Version 7)
Quarter: 2019Q3

REPORT INFORMATION
  Report Type: Report from Study
  Country: US (occurrence: US)
  Receive Date: 20180312
  Receipt Date: 20190820
  Transmission Date: 20191004
  Serious: Yes (Death, Hospitalization)
  Sender: FDA-Public Use
  Company Number: PHHO2018US003277

PATIENT
  Age: 79 Year
  Sex: Female
  Weight: 54.6 kg

DRUGS (18)
  1. GSK2118436 [Suspect]
     Active Substance: DABRAFENIB
     Indication: MALIGNANT MELANOMA
     Dosage: 150 MG, BID (TOTAL DOSE: 7500MG)
     Route: 048
     Dates: start: 20180113, end: 20180205
  2. GSK2118436 [Suspect]
     Active Substance: DABRAFENIB
     Dosage: 150 MG, BID (TOTAL DOSE:11250 MG)
     Route: 048
     Dates: start: 20180628, end: 20180808
  3. ELIQUIS [Concomitant]
     Active Substance: APIXABAN
     Indication: PRODUCT USED FOR UNKNOWN INDICATION
     Dosage: 5 MG, BID
     Route: 048
     Dates: start: 20180819
  4. GLUCAGON. [Concomitant]
     Active Substance: GLUCAGON
     Indication: PRODUCT USED FOR UNKNOWN INDICATION
     Dosage: 1 MG, PRN
     Route: 030
  5. GSK1120212 [Suspect]
     Active Substance: TRAMETINIB
     Dosage: 2 MG, QD (TOTAL DOSE:74 MG)
     Route: 048
     Dates: start: 20180628, end: 20180808
  6. ZOFRAN [Concomitant]
     Active Substance: ONDANSETRON HYDROCHLORIDE
     Indication: VOMITING
  7. GSK1120212 [Suspect]
     Active Substance: TRAMETINIB
     Indication: MALIGNANT MELANOMA
     Dosage: 2 MG, QD (TOTAL DOSE: 50MG)
     Route: 048
     Dates: start: 20180113, end: 20180204
  8. ZOFRAN [Concomitant]
     Active Substance: ONDANSETRON HYDROCHLORIDE
     Indication: NAUSEA
     Dosage: 4 MG, Q8H
     Route: 042
     Dates: end: 20180819
  9. TYLENOL [Concomitant]
     Active Substance: ACETAMINOPHEN
     Indication: PAIN
     Dosage: 650 MG, Q4H
     Route: 048
  10. LIPITOR [Concomitant]
     Active Substance: ATORVASTATIN CALCIUM
     Indication: PRODUCT USED FOR UNKNOWN INDICATION
     Dosage: 40 MG, UNK
     Route: 065
     Dates: start: 20180819
  11. NIVOLUMAB [Suspect]
     Active Substance: NIVOLUMAB
     Indication: MALIGNANT MELANOMA
     Dosage: UNK
     Route: 065
     Dates: start: 20170706, end: 20171207
  12. MORPHINE SULFATE. [Concomitant]
     Active Substance: MORPHINE SULFATE
     Indication: PAIN
     Dosage: 1 MG, Q3H
     Route: 042
  13. TYLENOL [Concomitant]
     Active Substance: ACETAMINOPHEN
     Indication: PYREXIA
  14. DEXTROSE. [Concomitant]
     Active Substance: DEXTROSE
     Indication: BLOOD GLUCOSE DECREASED
     Dosage: 0 ML, (DEXTROSE IN WATER) AS PER PROTOCOL
     Route: 042
  15. SOLU-CORTEF [Concomitant]
     Active Substance: HYDROCORTISONE SODIUM SUCCINATE
     Indication: PRODUCT USED FOR UNKNOWN INDICATION
     Dosage: 50 MG, Q8H
     Route: 042
     Dates: end: 20180820
  16. DULCOLAX NOS [Concomitant]
     Active Substance: BISACODYL OR DOCUSATE SODIUM
     Indication: CONSTIPATION
     Dosage: 10 MG, PRN
     Route: 042
  17. COLACE [Concomitant]
     Active Substance: DOCUSATE SODIUM
     Indication: CONSTIPATION
     Dosage: 100 MG, PRN
     Route: 048
  18. SYNTHROID [Concomitant]
     Active Substance: LEVOTHYROXINE SODIUM
     Indication: PRODUCT USED FOR UNKNOWN INDICATION
     Dosage: 50 UG, UNK
     Route: 048
     Dates: end: 20180820

REACTIONS (15)
  - Muscular weakness [Recovered/Resolved]
  - Diarrhoea [Recovered/Resolved]
  - Cardiac failure [Recovered/Resolved]
  - Nausea [Recovered/Resolved]
  - Death [Fatal]
  - Muscular weakness [Recovered/Resolved]
  - Hypotension [Recovered/Resolved]
  - Vomiting [Recovered/Resolved]
  - Hyponatraemia [Recovered/Resolved]
  - Hyperkalaemia [Recovered/Resolved]
  - Cough [Recovered/Resolved]
  - Syncope [Recovering/Resolving]
  - Respiratory failure [Recovered/Resolved]
  - Hyponatraemia [Recovered/Resolved]
  - Pleural effusion [Recovered/Resolved]

NARRATIVE: CASE EVENT DATE: 20180125
